FAERS Safety Report 19936619 (Version 1)
Quarter: 2021Q4

REPORT INFORMATION
  Report Type: Spontaneous
  Country: RO (occurrence: RO)
  Receive Date: 20211009
  Receipt Date: 20211009
  Transmission Date: 20220303
  Serious: Yes (Disabling, Other)
  Sender: FDA-Public Use
  Company Number: RO-ACCORD-240907

PATIENT
  Age: 36 Year
  Sex: Female
  Weight: 93 kg

DRUGS (5)
  1. DOCETAXEL [Suspect]
     Active Substance: DOCETAXEL
     Indication: Breast cancer
     Dosage: STRENGTH: 80 MG
     Route: 042
     Dates: start: 20210525, end: 20210525
  2. DEXAMETHASONE [Concomitant]
     Active Substance: DEXAMETHASONE
     Indication: Adrenocortical steroid therapy
     Dosage: STRENGTH: 150MG
     Dates: start: 20210525
  3. METOCLOPRAMIDE [Concomitant]
     Active Substance: METOCLOPRAMIDE
     Indication: Antiemetic supportive care
     Dosage: STRENGTH: 10MG
     Route: 048
     Dates: start: 20210525
  4. OMERAN [Concomitant]
     Indication: Antacid therapy
     Route: 048
     Dates: start: 20210525
  5. TRAMADOL [Concomitant]
     Active Substance: TRAMADOL
     Indication: Pain
     Dosage: STRENGTH: 50MG
     Route: 048
     Dates: start: 20210525

REACTIONS (5)
  - Diarrhoea [Unknown]
  - Abdominal pain [Unknown]
  - Nausea [Unknown]
  - Myalgia [Unknown]
  - Bone pain [Unknown]

NARRATIVE: CASE EVENT DATE: 20210525
